FAERS Safety Report 4390006-3 (Version None)
Quarter: 2004Q2

REPORT INFORMATION
  Report Type: 
  Country: None (occurrence: None)
  Receive Date: 20040630
  Receipt Date: 20040617
  Transmission Date: 20050107
  Serious: Yes (Hospitalization)
  Sender: FDA-Public Use
  Company Number: 2004220153FR

PATIENT
  Age: 63 Year
  Sex: Male

DRUGS (3)
  1. ESTRACYT(ESTRAMUSTINE PHOSPHATE) CAPSULE [Suspect]
     Indication: PROSTATE CANCER
     Dosage: 2 DF, QD, CYCLE, 3 , ORAL
     Route: 048
     Dates: start: 20031223, end: 20040109
  2. NEOCEL(DOCETAXEL) SOLUTION, STERILE [Suspect]
     Indication: PROSTATE CANCER
     Dosage: 60 MG, WEEKLY, CYCLE 3, IV
     Route: 042
     Dates: start: 20031224, end: 20040108
  3. NAVELBINE [Concomitant]

REACTIONS (5)
  - HAEMOGLOBIN DECREASED [None]
  - MOUTH HAEMORRHAGE [None]
  - MUCOSAL INFLAMMATION [None]
  - NEUTROPENIA [None]
  - SKIN NECROSIS [None]
